FAERS Safety Report 5266664-8 (Version None)
Quarter: 2007Q1

REPORT INFORMATION
  Report Type: 
  Country: None (occurrence: None)
  Receive Date: 20070312
  Receipt Date: 20070223
  Transmission Date: 20070707
  Serious: Yes (Other)
  Sender: FDA-Public Use
  Company Number: 2007JP000868

PATIENT
  Age: 18 Year
  Sex: Male

DRUGS (4)
  1. PROGRAF [Suspect]
     Indication: BONE MARROW TRANSPLANT
  2. METHOTREXATE FORMULATION UNKNOWN [Concomitant]
  3. METHYLPREDNISOLONE (METHYLPREDNISOLONE) FORMULATION UNKNOWN [Concomitant]
  4. MYCOPHENOLATE MOFETIL (MYCOPHENOLATE MOFETIL) FORMULATION UNKNOWN [Concomitant]

REACTIONS (2)
  - EOSINOPHILIC PNEUMONIA [None]
  - PULMONARY TUBERCULOSIS [None]
